FAERS Safety Report 8483121-6 (Version None)
Quarter: 2012Q3

REPORT INFORMATION
  Report Type: 
  Country: None (occurrence: None)
  Receive Date: 20120702
  Receipt Date: 20120620
  Transmission Date: 20120928
  Serious: Yes (Hospitalization, Other)
  Sender: FDA-Public Use
  Company Number: JP-VERTEX PHARMACEUTICALS INC.-AE-2012-004794

PATIENT
  Age: 64 Year
  Sex: Male

DRUGS (15)
  1. OMEPRAZOLE [Concomitant]
     Route: 048
  2. BUTIKINON [Concomitant]
     Route: 048
  3. RIBAVIRIN [Concomitant]
     Route: 048
     Dates: start: 20120502, end: 20120509
  4. RIBAVIRIN [Concomitant]
     Route: 048
     Dates: start: 20120530, end: 20120601
  5. OLMESARTAN MEDOXOMIL [Concomitant]
     Route: 048
  6. PROMACTA [Concomitant]
     Route: 048
  7. PEGINTERFERON ALFA-2B [Concomitant]
     Route: 058
  8. TELAVIC (TELAPREVIR) [Suspect]
     Route: 048
     Dates: end: 20120613
  9. URDESTON [Concomitant]
     Route: 048
  10. JANUVIA [Concomitant]
     Route: 048
  11. VOGLIBOSE [Concomitant]
     Route: 048
  12. TELAVIC (TELAPREVIR) [Suspect]
     Indication: HEPATITIS C
     Route: 048
     Dates: start: 20120321
  13. RIBAVIRIN [Concomitant]
     Indication: HEPATITIS C
     Route: 048
     Dates: start: 20120321, end: 20120423
  14. RIBAVIRIN [Concomitant]
     Route: 048
     Dates: start: 20120423, end: 20120501
  15. METFORMIN HCL [Concomitant]
     Route: 048

REACTIONS (3)
  - ANAEMIA [None]
  - DRUG ERUPTION [None]
  - LOSS OF CONSCIOUSNESS [None]
